FAERS Safety Report 13445168 (Version 2)
Quarter: 2017Q3

REPORT INFORMATION
  Report Type: Spontaneous
  Country: FR (occurrence: FR)
  Receive Date: 20170414
  Receipt Date: 20170725
  Transmission Date: 20171127
  Serious: Yes (Hospitalization)
  Sender: FDA-Public Use
  Company Number: FR-PFIZER INC-2017163800

PATIENT
  Age: 14 Year
  Sex: Female

DRUGS (2)
  1. CYTOTEC [Suspect]
     Active Substance: MISOPROSTOL
     Indication: ABORTION INDUCED
     Dosage: 200 UG, UNK
     Dates: start: 19940319, end: 19940319
  2. MIFEGYNE [Suspect]
     Active Substance: MIFEPRISTONE
     Indication: ABORTION INDUCED
     Dosage: 200 UG, UNK
     Dates: start: 19940317, end: 19940317

REACTIONS (3)
  - Product use in unapproved indication [Unknown]
  - Intestinal obstruction [Recovered/Resolved]
  - Vaginal haemorrhage [Recovered/Resolved]

NARRATIVE: CASE EVENT DATE: 19940319
